FAERS Safety Report 8603443-5 (Version None)
Quarter: 2012Q3

REPORT INFORMATION
  Report Type: 
  Country: None (occurrence: None)
  Receive Date: 20120806
  Receipt Date: 20120725
  Transmission Date: 20120928
  Serious: Yes (Hospitalization, Other)
  Sender: FDA-Public Use
  Company Number: CIP-2012-00281

PATIENT
  Age: 32 Year
  Sex: Male

DRUGS (5)
  1. VENLAFAXINE HCL [Concomitant]
  2. PALIPERIDONE [Concomitant]
  3. RISPERIDONE [Suspect]
     Indication: SCHIZOAFFECTIVE DISORDER
     Dosage: 4 MG, ORAL
     Route: 048
  4. LITHIUM CARBONATE [Concomitant]
  5. BENZTROPINE MESYLATE [Concomitant]

REACTIONS (2)
  - NEUROLEPTIC MALIGNANT SYNDROME [None]
  - RESPIRATORY FAILURE [None]
